FAERS Safety Report 7636712-6 (Version None)
Quarter: 2011Q3

REPORT INFORMATION
  Report Type: 
  Country: None (occurrence: None)
  Receive Date: 20110726
  Receipt Date: 20110711
  Transmission Date: 20111222
  Serious: Yes (Hospitalization)
  Sender: FDA-Public Use
  Company Number: US-ARROW GEN-2011-10962

PATIENT
  Age: 35 Year
  Sex: Female

DRUGS (5)
  1. LITHIUM CARBONATE [Suspect]
     Indication: SCHIZOPHRENIA
     Dosage: 600 MG, BID
     Route: 048
  2. BENZTROPINE MESYLATE [Suspect]
     Indication: PROPHYLAXIS
     Dosage: 1 MG, TID
     Route: 048
  3. RISPERIDONE [Suspect]
     Indication: SCHIZOPHRENIA
     Dosage: 4 MG, TID
     Route: 048
  4. OLANZAPINE [Suspect]
     Indication: SCHIZOPHRENIA
     Dosage: 20 MG, BID
     Route: 048
  5. HALOPERIDOL [Suspect]
     Indication: AGITATION
     Dosage: 5 MG, PRN

REACTIONS (1)
  - ILEUS PARALYTIC [None]
